FAERS Safety Report 25713965 (Version 1)
Quarter: 2025Q3

REPORT INFORMATION
  Report Type: Report from Study
  Country: US (occurrence: US)
  Receive Date: 20250822
  Receipt Date: 20250822
  Transmission Date: 20251020
  Serious: Yes (Other)
  Sender: SUNOVION
  Company Number: US-SUMITOMO PHARMA SWITZERLAND GMBH-2025SPA000668

PATIENT
  Age: 74 Year
  Sex: Male

DRUGS (31)
  1. ORGOVYX [Suspect]
     Active Substance: RELUGOLIX
     Indication: Prostate cancer
     Dosage: 120 MG, QD
     Route: 048
     Dates: start: 20250118
  2. ALFUZOSIN HYDROCHLORIDE [Concomitant]
     Active Substance: ALFUZOSIN HYDROCHLORIDE
     Route: 048
  3. ALLEGRA ALLERGY [Concomitant]
     Active Substance: FEXOFENADINE HYDROCHLORIDE
     Route: 048
  4. ASCORBIC ACID [Concomitant]
     Active Substance: ASCORBIC ACID
     Route: 048
  5. ASPIRIN [Concomitant]
     Active Substance: ASPIRIN
     Route: 048
  6. BACLOFEN [Concomitant]
     Active Substance: BACLOFEN
     Route: 048
  7. Black cohosh extract [Concomitant]
     Route: 048
  8. CLOPIDOGREL BISULFATE [Concomitant]
     Active Substance: CLOPIDOGREL BISULFATE
     Route: 048
  9. COLACE [Concomitant]
     Active Substance: DOCUSATE SODIUM
     Route: 048
  10. EZETIMIBE [Concomitant]
     Active Substance: EZETIMIBE
     Route: 048
  11. FLONASE ALLERGY RELIEF [Concomitant]
     Active Substance: FLUTICASONE PROPIONATE
     Route: 045
  12. FOLIC ACID [Concomitant]
     Active Substance: FOLIC ACID
     Route: 048
  13. GABAPENTIN [Concomitant]
     Active Substance: GABAPENTIN
     Route: 048
  14. GLUCOSAMINE SULFATE [Concomitant]
     Active Substance: GLUCOSAMINE SULFATE
     Route: 048
  15. DIETARY SUPPLEMENT\GRAPE SEED EXTRACT [Concomitant]
     Active Substance: DIETARY SUPPLEMENT\GRAPE SEED EXTRACT
     Route: 048
  16. HYDROCHLOROTHIAZIDE [Concomitant]
     Active Substance: HYDROCHLOROTHIAZIDE
     Route: 048
  17. LEVSIN SL [Concomitant]
     Active Substance: HYOSCYAMINE SULFATE
     Route: 060
  18. LOSARTAN POTASSIUM [Concomitant]
     Active Substance: LOSARTAN POTASSIUM
     Route: 048
  19. MAGNESIUM GLUCONATE [Concomitant]
     Active Substance: MAGNESIUM GLUCONATE
     Route: 048
  20. METAMUCIL [Concomitant]
     Active Substance: PLANTAGO SEED
     Route: 048
  21. MIRTAZAPINE [Concomitant]
     Active Substance: MIRTAZAPINE
     Route: 048
  22. MINERALS\VITAMINS [Concomitant]
     Active Substance: MINERALS\VITAMINS
     Route: 048
  23. Neurivas [Concomitant]
     Route: 048
  24. NORTRIPTYLINE HYDROCHLORIDE [Concomitant]
     Active Substance: NORTRIPTYLINE HYDROCHLORIDE
     Route: 048
  25. PANTOPRAZOLE SODIUM [Concomitant]
     Active Substance: PANTOPRAZOLE SODIUM
     Route: 048
  26. PROCARDIA [Concomitant]
     Active Substance: NIFEDIPINE
     Route: 048
  27. REPATHA [Concomitant]
     Active Substance: EVOLOCUMAB
  28. SELENIUM [Concomitant]
     Active Substance: SELENIUM
     Route: 048
  29. TRAMADOL HCL [Concomitant]
     Active Substance: TRAMADOL HYDROCHLORIDE
     Route: 048
  30. VASCEPA [Concomitant]
     Active Substance: ICOSAPENT ETHYL
     Route: 048
  31. VITAMIN B COMPLEX [Concomitant]
     Active Substance: CYANOCOBALAMIN\DEXPANTHENOL\NIACINAMIDE\PYRIDOXINE HYDROCHLORIDE\RIBOFLAVIN 5^-PHOSPHATE SODIUM\THIA
     Route: 048

REACTIONS (7)
  - Sinus operation [Unknown]
  - Dry mouth [Unknown]
  - Emotional disorder [Unknown]
  - Night sweats [Unknown]
  - Weight increased [Unknown]
  - Hot flush [Unknown]
  - Incorrect dose administered [Recovered/Resolved]

NARRATIVE: CASE EVENT DATE: 20250320
